FAERS Safety Report 9970776 (Version 1)
Quarter: 2014Q1

REPORT INFORMATION
  Report Type: Report from Study
  Country: US (occurrence: US)
  Receive Date: 20140306
  Receipt Date: 20140306
  Transmission Date: 20141002
  Serious: No
  Sender: FDA-Public Use
  Company Number: US-ABBVIE-13P-163-1149081-00

PATIENT
  Age: 26 Year
  Sex: Male

DRUGS (6)
  1. HUMIRA [Suspect]
     Indication: CROHN^S DISEASE
     Dates: start: 20130708, end: 20130708
  2. HUMIRA [Suspect]
     Dates: start: 20130722, end: 20130722
  3. HUMIRA [Suspect]
  4. IRON [Concomitant]
     Indication: ANAEMIA
     Dosage: DAILY
  5. PENTASA [Concomitant]
     Indication: CROHN^S DISEASE
  6. MVI [Concomitant]
     Indication: PRODUCT USED FOR UNKNOWN INDICATION
     Dosage: DAILY

REACTIONS (1)
  - Injection site pain [Recovered/Resolved]
